FAERS Safety Report 6826158-2 (Version None)
Quarter: 2010Q3

REPORT INFORMATION
  Report Type: 
  Country: None (occurrence: None)
  Receive Date: 20100709
  Receipt Date: 20100629
  Transmission Date: 20110219
  Serious: Yes (Death, Hospitalization)
  Sender: FDA-Public Use
  Company Number: US-ELI_LILLY_AND_COMPANY-US201007000130

PATIENT
  Sex: Female

DRUGS (7)
  1. PRASUGREL HYDROCHLORIDE [Suspect]
     Indication: ACUTE CORONARY SYNDROME
  2. CLOPIDOGREL [Concomitant]
     Dosage: 75 MG, DAILY (1/D)
     Dates: start: 20100612
  3. METOPROLOL [Concomitant]
     Indication: HYPERTENSION
     Dosage: 12.5 MG, 2/D
     Route: 048
     Dates: start: 20100609
  4. ZOCOR [Concomitant]
     Indication: HYPERLIPIDAEMIA
     Dosage: 40 MG, DAILY (1/D)
     Route: 048
     Dates: start: 20100610
  5. LOVENOX [Concomitant]
     Indication: CORONARY ARTERY DISEASE
     Dosage: 100 MG, DAILY (1/D)
     Route: 058
     Dates: start: 20100610, end: 20100610
  6. INTEGRILIN [Concomitant]
     Indication: CORONARY ARTERY DISEASE
     Dosage: 75 MG, OTHER
     Route: 042
     Dates: start: 20100608, end: 20100608
  7. GLIPIZIDE [Concomitant]
     Indication: DIABETES MELLITUS
     Dosage: 5 MG, DAILY (1/D)
     Route: 048
     Dates: start: 20100612

REACTIONS (1)
  - VENTRICULAR TACHYCARDIA [None]
